FAERS Safety Report 5657518-3 (Version None)
Quarter: 2008Q1

REPORT INFORMATION
  Report Type: 
  Country: None (occurrence: None)
  Receive Date: 20080310
  Receipt Date: 20080229
  Transmission Date: 20080703
  Serious: Yes (Other)
  Sender: FDA-Public Use
  Company Number: US-PFIZER INC-2008019418

PATIENT
  Sex: Male
  Weight: 99.8 kg

DRUGS (7)
  1. LIPITOR [Suspect]
     Indication: BLOOD CHOLESTEROL INCREASED
     Route: 048
  2. LIPITOR [Suspect]
     Indication: HYPERTENSION
  3. TOPROL [Concomitant]
     Indication: BLOOD PRESSURE
  4. NORVASC [Concomitant]
     Indication: BLOOD PRESSURE
  5. ALL OTHER THERAPEUTIC PRODUCTS [Concomitant]
     Indication: CARDIAC DISORDER
  6. ISOSORBIDE DINITRATE [Concomitant]
     Indication: CARDIAC DISORDER
  7. ASPIRIN [Concomitant]
     Indication: CARDIAC DISORDER

REACTIONS (20)
  - ABDOMINAL PAIN UPPER [None]
  - ALANINE AMINOTRANSFERASE INCREASED [None]
  - ANOREXIA [None]
  - ASPARTATE AMINOTRANSFERASE INCREASED [None]
  - BLOOD ALKALINE PHOSPHATASE INCREASED [None]
  - BLOOD BILIRUBIN INCREASED [None]
  - BLOOD CHOLESTEROL DECREASED [None]
  - BLOOD CREATININE INCREASED [None]
  - CARBON DIOXIDE DECREASED [None]
  - CHILLS [None]
  - CONSTIPATION [None]
  - DYSPEPSIA [None]
  - EPIDERMAL GROWTH FACTOR RECEPTOR DECREASED [None]
  - FATIGUE [None]
  - FLATULENCE [None]
  - GASTRIC DISORDER [None]
  - HEPATIC ENZYME INCREASED [None]
  - HIGH DENSITY LIPOPROTEIN DECREASED [None]
  - LYMPHOCYTE COUNT INCREASED [None]
  - VERY LOW DENSITY LIPOPROTEIN INCREASED [None]
